FAERS Safety Report 4518565-8 (Version None)
Quarter: 2004Q4

REPORT INFORMATION
  Report Type: 
  Country: None (occurrence: None)
  Receive Date: 20041104
  Receipt Date: 20040713
  Transmission Date: 20050328
  Serious: Yes (Other)
  Sender: FDA-Public Use
  Company Number: PHEH2004US07528

PATIENT
  Sex: Female

DRUGS (7)
  1. ESTRADERM [Suspect]
     Indication: HORMONE REPLACEMENT THERAPY
     Dosage: TRANSDERMAL
     Route: 062
  2. VIVELLE-DOT [Suspect]
     Indication: HORMONE REPLACEMENT THERAPY
     Dosage: TRANSDERMAL
     Route: 062
  3. ESTRACE [Suspect]
  4. PROVERA [Suspect]
  5. CYRIN (MEDROXYPROGESTERONE ACETATE) [Suspect]
  6. PREMPRO [Suspect]
  7. PREMARIN [Suspect]

REACTIONS (1)
  - BREAST CANCER [None]
